FAERS Safety Report 21555268 (Version 1)
Quarter: 2022Q4

REPORT INFORMATION
  Report Type: Spontaneous
  Country: GB (occurrence: GB)
  Receive Date: 20221104
  Receipt Date: 20221104
  Transmission Date: 20230112
  Serious: Yes (Hospitalization)
  Sender: FDA-Public Use
  Company Number: None

PATIENT
  Sex: Female

DRUGS (9)
  1. PRAMIPEXOLE [Suspect]
     Active Substance: PRAMIPEXOLE
     Indication: Restless legs syndrome
     Dosage: UNKNOWN
     Route: 065
  2. CHOLECALCIFEROL [Concomitant]
     Active Substance: CHOLECALCIFEROL
     Indication: Product used for unknown indication
     Dosage: UNKNOWN
     Route: 065
  3. LEVOTHYROXINE [Concomitant]
     Active Substance: LEVOTHYROXINE
     Indication: Product used for unknown indication
     Dosage: TAKE ONE A DAY TOTAL DOSE, 75MCG/DAY
     Route: 065
  4. ACETAMINOPHEN [Concomitant]
     Active Substance: ACETAMINOPHEN
     Indication: Product used for unknown indication
     Dosage: ONE OR TWO TO BE TAKEN EVERY 4-6 HOURS UP TO FOUR TIMES A DAY IF REQUIRED
     Route: 065
  5. LEVOTHYROXINE [Concomitant]
     Active Substance: LEVOTHYROXINE
     Indication: Product used for unknown indication
     Dosage: TAKE ONE DAILY
     Route: 065
  6. Doublebase emollient [Concomitant]
     Indication: Product used for unknown indication
     Dosage: USE REGULARLY AND AS OFTEN AS NECESSARY
     Route: 065
  7. EUMOVATE [Concomitant]
     Active Substance: CLOBETASONE BUTYRATE
     Indication: Product used for unknown indication
     Dosage: APPLY THINLY ONCE OR TWICE A DAY
     Route: 061
  8. ZeroAQS emollient cream [Concomitant]
     Indication: Product used for unknown indication
     Dosage: APPLY TWICE DAILY AS MOISTURISER
     Route: 061
  9. Colecalciferol 400unit / Calcium carbonate 1.5g [Concomitant]
     Indication: Product used for unknown indication
     Dosage: TAKE ONE TWICE DAILY
     Route: 065

REACTIONS (1)
  - Hyponatraemia [Recovered/Resolved]
